FAERS Safety Report 5150911-7 (Version None)
Quarter: 2006Q4

REPORT INFORMATION
  Report Type: 
  Country: None (occurrence: None)
  Receive Date: 20061114
  Receipt Date: 20061106
  Transmission Date: 20070319
  Serious: Yes (Death, Hospitalization)
  Sender: FDA-Public Use
  Company Number: CA-BOEHRINGER INGELHEIM PHARMACEUTICALS, INC.-2006-CN-00614CN

PATIENT
  Sex: Female

DRUGS (1)
  1. MICARDIS HCT [Suspect]
     Indication: BLOOD PRESSURE INCREASED
     Dates: start: 20060417

REACTIONS (1)
  - LUNG NEOPLASM MALIGNANT [None]
